FAERS Safety Report 15767779 (Version 1)
Quarter: 2018Q4

REPORT INFORMATION
  Report Type: Spontaneous
  Country: CN (occurrence: CN)
  Receive Date: 20181227
  Receipt Date: 20181227
  Transmission Date: 20190205
  Serious: Yes (Hospitalization)
  Sender: FDA-Public Use
  Company Number: CN-TAKEDA-2018TJP032125

PATIENT
  Age: 50 Year
  Sex: Female

DRUGS (2)
  1. TAKEPRON [Suspect]
     Active Substance: LANSOPRAZOLE
     Indication: HELICOBACTER INFECTION
     Dosage: 30 MG, QD
     Route: 048
     Dates: start: 20181001, end: 20181007
  2. LIVZON WEISANLIAN [Suspect]
     Active Substance: CLARITHROMYCIN\TINIDAZOLE
     Indication: HELICOBACTER INFECTION
     Dosage: 4 TABLETS, BID
     Route: 048
     Dates: start: 20181001, end: 20181007

REACTIONS (3)
  - Drug eruption [Recovering/Resolving]
  - Dermatitis [Recovering/Resolving]
  - Adverse drug reaction [Recovering/Resolving]

NARRATIVE: CASE EVENT DATE: 20181008
